FAERS Safety Report 19361989 (Version 2)
Quarter: 2021Q4

REPORT INFORMATION
  Report Type: Report from Study
  Country: KR (occurrence: KR)
  Receive Date: 20210603
  Receipt Date: 20211116
  Transmission Date: 20220303
  Serious: Yes (Other)
  Sender: FDA-Public Use
  Company Number: KR-KYOWAKIRIN-2021AKK009289

PATIENT
  Sex: Female

DRUGS (17)
  1. FILGRASTIM [Suspect]
     Active Substance: FILGRASTIM
     Indication: Product used for unknown indication
     Dosage: UNK
     Route: 065
  2. AZACITIDINE [Concomitant]
     Active Substance: AZACITIDINE
  3. AMBROXOL [Concomitant]
     Active Substance: AMBROXOL
  4. CEFEPIME [Concomitant]
     Active Substance: CEFEPIME HYDROCHLORIDE
  5. CEFTAZIDIME [Concomitant]
     Active Substance: CEFTAZIDIME
  6. CODEINE [Concomitant]
     Active Substance: CODEINE
  7. FLUCONAZOLE [Concomitant]
     Active Substance: FLUCONAZOLE
  8. GLIMEPIRIDE [Concomitant]
     Active Substance: GLIMEPIRIDE
  9. LACTULOSE [Concomitant]
     Active Substance: LACTULOSE
  10. LENOGRASTIM [Concomitant]
     Active Substance: LENOGRASTIM
  11. LEVOFLOXACIN [Concomitant]
     Active Substance: LEVOFLOXACIN
  12. MEGESTROL [Concomitant]
     Active Substance: MEGESTROL
  13. MEROPENEM [Concomitant]
     Active Substance: MEROPENEM
  14. PROPACETAMOL [Concomitant]
     Active Substance: PROPACETAMOL
  15. TIOTROPIUM BROMIDE [Concomitant]
     Active Substance: TIOTROPIUM BROMIDE
  16. TRANEXAMIC ACID [Concomitant]
     Active Substance: TRANEXAMIC ACID
  17. VANCOMYCIN [Concomitant]
     Active Substance: VANCOMYCIN

REACTIONS (13)
  - Bradycardia [Recovered/Resolved]
  - Neutropenia [Recovered/Resolved]
  - Decreased appetite [Recovered/Resolved]
  - Constipation [Recovered/Resolved]
  - Dry mouth [Recovered/Resolved]
  - Tachycardia [Recovered/Resolved]
  - Cough [Recovered/Resolved]
  - Epistaxis [Recovered/Resolved]
  - Haemoptysis [Recovered/Resolved]
  - Urine output decreased [Recovered/Resolved]
  - Electric shock sensation [Recovered/Resolved]
  - Headache [Recovered/Resolved]
  - Nausea [Recovered/Resolved]

NARRATIVE: CASE EVENT DATE: 20120615
